FAERS Safety Report 11959515 (Version 1)
Quarter: 2016Q1

REPORT INFORMATION
  Report Type: Report from Study
  Country: US (occurrence: US)
  Receive Date: 20160126
  Receipt Date: 20160126
  Transmission Date: 20160526
  Serious: No
  Sender: FDA-Public Use
  Company Number: US-ABBVIE-15K-163-1371624-00

PATIENT
  Age: 35 Year
  Sex: Male

DRUGS (2)
  1. HUMIRA [Suspect]
     Active Substance: ADALIMUMAB
     Indication: PSORIATIC ARTHROPATHY
     Route: 065
     Dates: start: 20150320, end: 20150320
  2. HUMIRA [Suspect]
     Active Substance: ADALIMUMAB
     Route: 065
     Dates: start: 20150403

REACTIONS (3)
  - Device issue [Unknown]
  - Injection site vesicles [Unknown]
  - Injection site vesicles [Recovered/Resolved]

NARRATIVE: CASE EVENT DATE: 2015
